FAERS Safety Report 7664384-3 (Version None)
Quarter: 2011Q3

REPORT INFORMATION
  Report Type: 
  Country: None (occurrence: None)
  Receive Date: 20110806
  Receipt Date: 20110119
  Transmission Date: 20111222
  Serious: No
  Sender: FDA-Public Use
  Company Number: US-ABBOTT-11P-163-0699972-00

PATIENT
  Sex: Male

DRUGS (4)
  1. VYTORIN [Concomitant]
     Indication: BLOOD CHOLESTEROL
     Dosage: UNKNOWN
  2. FISH OIL [Concomitant]
     Indication: BLOOD CHOLESTEROL
     Dosage: UNKNOWN
  3. NIASPAN [Suspect]
     Indication: BLOOD CHOLESTEROL
     Dates: start: 20100101, end: 20110101
  4. ASPIRIN [Concomitant]
     Indication: PRODUCT USED FOR UNKNOWN INDICATION
     Dosage: UNKNOWN

REACTIONS (1)
  - FLUSHING [None]
